FAERS Safety Report 16268176 (Version 1)
Quarter: 2019Q2

REPORT INFORMATION
  Report Type: Other
  Country: US (occurrence: US)
  Receive Date: 20190503
  Receipt Date: 20190503
  Transmission Date: 20190711
  Serious: Yes (Other)
  Sender: FDA-Public Use
  Company Number: US-BIOVITRUM-2019US0858

PATIENT
  Sex: Male

DRUGS (1)
  1. KINERET [Suspect]
     Active Substance: ANAKINRA
     Route: 058
     Dates: start: 20190412

REACTIONS (6)
  - Abdominal discomfort [Unknown]
  - Paralysis [Unknown]
  - Migraine [Unknown]
  - Dizziness [Unknown]
  - Nausea [Unknown]
  - Impaired driving ability [Unknown]
